FAERS Safety Report 22915659 (Version 2)
Quarter: 2023Q4

REPORT INFORMATION
  Report Type: Other
  Country: CN (occurrence: None)
  Receive Date: 20230907
  Receipt Date: 20231004
  Transmission Date: 20240110
  Serious: Yes (Other)
  Sender: FDA-Public Use
  Company Number: CN-ROCHE-3380268

PATIENT
  Age: 63 Year
  Sex: Female
  Weight: 60 kg

DRUGS (8)
  1. PERJETA [Suspect]
     Active Substance: PERTUZUMAB
     Indication: Breast adenoma
     Dosage: INJECTION, 420 MG (14ML) PER VIAL, INTRAVENOUS INFUSION
     Route: 042
     Dates: start: 20230620
  2. PERJETA [Suspect]
     Active Substance: PERTUZUMAB
     Indication: Metastases to lymph nodes
  3. HERCEPTIN [Suspect]
     Active Substance: TRASTUZUMAB
     Indication: Breast adenoma
     Dosage: INJECTION, 440 MG (20ML) PER VIAL, INTRAVENOUS INFUSION
     Route: 042
     Dates: start: 20230620
  4. HERCEPTIN [Suspect]
     Active Substance: TRASTUZUMAB
     Indication: Metastases to lymph nodes
  5. DOCETAXEL [Suspect]
     Active Substance: DOCETAXEL
     Indication: Breast adenoma
     Route: 065
  6. DOCETAXEL [Suspect]
     Active Substance: DOCETAXEL
     Indication: Metastases to lymph nodes
  7. METOPROLOL TARTRATE [Concomitant]
     Active Substance: METOPROLOL TARTRATE
     Indication: Heart rate increased
  8. BICYCLOL [Concomitant]
     Active Substance: BICYCLOL
     Indication: Drug-induced liver injury

REACTIONS (15)
  - Erythema [Not Recovered/Not Resolved]
  - Mental disorder [Unknown]
  - Pneumonia [Unknown]
  - Mouth ulceration [Recovering/Resolving]
  - White blood cell count decreased [Not Recovered/Not Resolved]
  - Heart rate increased [Recovering/Resolving]
  - Gingival disorder [Recovered/Resolved]
  - Gingival bleeding [Recovered/Resolved]
  - Swelling face [Unknown]
  - Nasal dryness [Unknown]
  - Peripheral swelling [Unknown]
  - Gastrooesophageal reflux disease [Not Recovered/Not Resolved]
  - Drug-induced liver injury [Recovering/Resolving]
  - Blood uric acid increased [Not Recovered/Not Resolved]
  - Transaminases increased [Unknown]

NARRATIVE: CASE EVENT DATE: 20230629
